FAERS Safety Report 5874449-4 (Version None)
Quarter: 2008Q3

REPORT INFORMATION
  Report Type: 
  Country: None (occurrence: None)
  Receive Date: 20080908
  Receipt Date: 20080827
  Transmission Date: 20090109
  Serious: Yes (Other)
  Sender: FDA-Public Use
  Company Number: CA-PFIZER INC-2008069646

PATIENT
  Age: 25 Year
  Sex: Male

DRUGS (1)
  1. ZOLOFT [Suspect]
     Indication: DEPRESSION
     Dosage: DAILY DOSE:150MG
     Route: 048

REACTIONS (3)
  - AMNESIA [None]
  - APPENDICECTOMY [None]
  - CONSTIPATION [None]
